FAERS Safety Report 6739568-9 (Version None)
Quarter: 2010Q2

REPORT INFORMATION
  Report Type: 
  Country: None (occurrence: None)
  Receive Date: 20100525
  Receipt Date: 20100310
  Transmission Date: 20101027
  Serious: No
  Sender: FDA-Public Use
  Company Number: US-AMGEN-KDL398618

PATIENT
  Sex: Female
  Weight: 108.1 kg

DRUGS (5)
  1. NPLATE [Suspect]
     Indication: IDIOPATHIC THROMBOCYTOPENIC PURPURA
     Dates: start: 20091111
  2. LEVOTHYROXINE SODIUM [Concomitant]
  3. PREVACID [Concomitant]
  4. ACETAMINOPHEN [Concomitant]
  5. VASTEN [Concomitant]

REACTIONS (1)
  - TREMOR [None]
